FAERS Safety Report 6459135-4 (Version None)
Quarter: 2009Q4

REPORT INFORMATION
  Report Type: 
  Country: None (occurrence: None)
  Receive Date: 20091127
  Receipt Date: 20091123
  Transmission Date: 20100525
  Serious: Yes (Hospitalization)
  Sender: FDA-Public Use
  Company Number: US-BRISTOL-MYERS SQUIBB COMPANY-14869713

PATIENT
  Age: 67 Year
  Sex: Male

DRUGS (4)
  1. CISPLATIN [Suspect]
     Indication: CRYPTOGENIC CIRRHOSIS
  2. CISPLATIN [Suspect]
     Indication: HEPATIC NEOPLASM MALIGNANT
  3. MITOMYCIN [Suspect]
  4. DOXORUBICIN HCL [Suspect]

REACTIONS (4)
  - BILIARY FISTULA [None]
  - DUODENAL ULCER [None]
  - PANCREATITIS [None]
  - PERITONITIS BACTERIAL [None]
